FAERS Safety Report 5524173-2 (Version None)
Quarter: 2007Q4

REPORT INFORMATION
  Report Type: 
  Country: None (occurrence: None)
  Receive Date: 20071121
  Receipt Date: 20071113
  Transmission Date: 20080405
  Serious: Yes (Hospitalization)
  Sender: FDA-Public Use
  Company Number: FR-PFIZER INC-2005013934

PATIENT
  Age: 52 Year
  Sex: Male

DRUGS (10)
  1. CELEBREX [Suspect]
     Indication: OSTEOARTHRITIS
     Route: 048
     Dates: start: 20030708, end: 20030719
  2. FUNGIZONE [Concomitant]
     Indication: FUNGAL INFECTION
     Route: 048
     Dates: start: 20030701, end: 20030719
  3. TRAMADOL HCL [Concomitant]
     Route: 048
     Dates: start: 20020101, end: 20030717
  4. DEXTROPROPOXYPHENE [Concomitant]
     Route: 048
  5. DYSALFA [Concomitant]
     Route: 048
     Dates: start: 20030501, end: 20030724
  6. DI-ANTALVIC [Concomitant]
     Dates: start: 20020101, end: 20030718
  7. ALTIM [Concomitant]
  8. POLARAMINE [Concomitant]
  9. ATARAX [Concomitant]
     Dates: start: 20030719, end: 20030720
  10. CLARYTINE [Concomitant]
     Dates: start: 20030718, end: 20030719

REACTIONS (2)
  - ACUTE GENERALISED EXANTHEMATOUS PUSTULOSIS [None]
  - ATOPY [None]
